FAERS Safety Report 10484353 (Version 2)
Quarter: 2014Q4

REPORT INFORMATION
  Report Type: Spontaneous
  Country: US (occurrence: US)
  Receive Date: 20140930
  Receipt Date: 20141015
  Transmission Date: 20150528
  Serious: Yes (Death, Hospitalization)
  Sender: FDA-Public Use
  Company Number: US-JNJFOC-20140926282

PATIENT
  Age: 48 Year
  Sex: Female

DRUGS (2)
  1. PLASMA [Concomitant]
     Active Substance: HUMAN PLASMA
  2. IMBRUVICA [Suspect]
     Active Substance: IBRUTINIB
     Indication: WALDENSTROM^S MACROGLOBULINAEMIA
     Route: 048
     Dates: start: 20140801

REACTIONS (8)
  - Lactic acidosis [Unknown]
  - Pancytopenia [Unknown]
  - Respiratory failure [Fatal]
  - Septic shock [Unknown]
  - Upper gastrointestinal haemorrhage [Unknown]
  - Pneumonia [Unknown]
  - Disseminated intravascular coagulation [Unknown]
  - Shock haemorrhagic [Unknown]

NARRATIVE: CASE EVENT DATE: 201408
